FAERS Safety Report 15171305 (Version 2)
Quarter: 2018Q4

REPORT INFORMATION
  Report Type: Spontaneous
  Country: US (occurrence: US)
  Receive Date: 20180720
  Receipt Date: 20181002
  Transmission Date: 20190204
  Serious: Yes (Other)
  Sender: FDA-Public Use
  Company Number: US-BAYER-2018-137169

PATIENT
  Age: 42 Year
  Sex: Female
  Weight: 94.79 kg

DRUGS (1)
  1. SKYLA [Suspect]
     Active Substance: LEVONORGESTREL
     Indication: CONTRACEPTION
     Dosage: 14 MCG/24HR, CONT
     Route: 015
     Dates: start: 20160609

REACTIONS (4)
  - Menometrorrhagia [None]
  - Device dislocation [None]
  - Vaginal haemorrhage [None]
  - Dysfunctional uterine bleeding [None]

NARRATIVE: CASE EVENT DATE: 2018
